FAERS Safety Report 4333623-9 (Version None)
Quarter: 2004Q2

REPORT INFORMATION
  Report Type: 
  Country: None (occurrence: None)
  Receive Date: 20040402
  Receipt Date: 20040325
  Transmission Date: 20050107
  Serious: Yes (Hospitalization)
  Sender: FDA-Public Use
  Company Number: 2004202484US

PATIENT
  Age: 38 Year
  Sex: Female
  Weight: 61.2 kg

DRUGS (7)
  1. COMPARATOR-DOCETAXEL (COMPARATOR-DOCETAXEL)  INJECTION [Suspect]
     Indication: BREAST CANCER
     Dosage: 30 MG, SINGLE, IV;
     Route: 042
     Dates: start: 20040304, end: 20040304
  2. DECADRON [Suspect]
     Indication: PREMEDICATION
     Dosage: 8 MG, 12H + 1 H BEFORE CHEMO, ORAL;  10 MG, 30 MIN BEFORE CHEMO, IV
     Route: 048
     Dates: start: 20040303, end: 20040304
  3. DECADRON [Suspect]
     Indication: PREMEDICATION
     Dosage: 8 MG, 12H + 1 H BEFORE CHEMO, ORAL;  10 MG, 30 MIN BEFORE CHEMO, IV
     Route: 048
     Dates: start: 20040304, end: 20040304
  4. LEXAPRO [Concomitant]
  5. MACROBID [Concomitant]
  6. TYLENOL (CAPLET) [Concomitant]
  7. ALOXI [Concomitant]

REACTIONS (2)
  - CONDITION AGGRAVATED [None]
  - HEADACHE [None]
